FAERS Safety Report 9314869 (Version 2)
Quarter: 2013Q2

REPORT INFORMATION
  Report Type: Spontaneous
  Country: US (occurrence: US)
  Receive Date: 20130529
  Receipt Date: 20130617
  Transmission Date: 20140414
  Serious: No
  Sender: FDA-Public Use
  Company Number: US-009507513-1305USA015200

PATIENT
  Sex: Female

DRUGS (3)
  1. STROMECTOL [Suspect]
     Indication: ACARODERMATITIS
     Dosage: 8 DF, QW, FOR 3 WEEKS
     Route: 048
     Dates: start: 20130522
  2. OXYCONTIN [Concomitant]
  3. OXYCODONE [Concomitant]

REACTIONS (3)
  - Pruritus [Not Recovered/Not Resolved]
  - Infestation [Not Recovered/Not Resolved]
  - Off label use [Unknown]
